FAERS Safety Report 5850234-4 (Version None)
Quarter: 2008Q3

REPORT INFORMATION
  Report Type: 
  Country: None (occurrence: None)
  Receive Date: 20080819
  Receipt Date: 20080808
  Transmission Date: 20090109
  Serious: Yes (Other)
  Sender: FDA-Public Use
  Company Number: PHBS2008US05377

PATIENT
  Age: 15 Year
  Sex: Male
  Weight: 64.5 kg

DRUGS (2)
  1. METHYLPHENIDATE HCL [Suspect]
     Indication: ATTENTION DEFICIT/HYPERACTIVITY DISORDER
     Dosage: 20 MG/DAY
     Route: 065
  2. VENLAFAXINE HCL [Concomitant]
     Indication: ATTENTION DEFICIT/HYPERACTIVITY DISORDER
     Dosage: 75 MG/DAY
     Route: 065

REACTIONS (7)
  - DELUSION OF GRANDEUR [None]
  - FLIGHT OF IDEAS [None]
  - IMPULSIVE BEHAVIOUR [None]
  - IRRITABILITY [None]
  - MANIA [None]
  - PRESSURE OF SPEECH [None]
  - SLEEP DISORDER [None]
